FAERS Safety Report 15237860 (Version 1)
Quarter: 2018Q3

REPORT INFORMATION
  Report Type: Spontaneous
  Country: ES (occurrence: ES)
  Receive Date: 20180803
  Receipt Date: 20180803
  Transmission Date: 20181010
  Serious: Yes (Other)
  Sender: FDA-Public Use
  Company Number: PHHY2018ES061762

PATIENT

DRUGS (3)
  1. MELPHALAN. [Suspect]
     Active Substance: MELPHALAN
     Indication: PLASMA CELL MYELOMA
     Dosage: UNK UNK, CYCLIC (VMP REGIMEN RECEIVED LESS THAN 9 CYCLES)
     Route: 065
  2. BORTEZOMIB. [Suspect]
     Active Substance: BORTEZOMIB
     Indication: PLASMA CELL MYELOMA
     Dosage: UNK UNK, CYCLIC (VMP REGIMEN RECEIVED LESS THAN 9 CYCLES)
     Route: 058
  3. PREDNISONE. [Suspect]
     Active Substance: PREDNISONE
     Indication: PLASMA CELL MYELOMA
     Dosage: UNK UNK, CYCLIC (VMP REGIMEN RECEIVED LESS THAN 9 CYCLES)
     Route: 065

REACTIONS (1)
  - Neuropathy peripheral [Unknown]
